FAERS Safety Report 9461532 (Version 1)
Quarter: 2013Q3

REPORT INFORMATION
  Report Type: Spontaneous
  Country: DE (occurrence: DE)
  Receive Date: 20130816
  Receipt Date: 20130816
  Transmission Date: 20140515
  Serious: Yes (Hospitalization)
  Sender: FDA-Public Use
  Company Number: DE-MYLANLABS-2013S1017472

PATIENT
  Age: 55 Year
  Sex: Male

DRUGS (2)
  1. ETANERCEPT [Suspect]
     Indication: SARCOIDOSIS
     Route: 065
  2. PREDNISOLONE [Suspect]
     Indication: IMMUNOSUPPRESSANT DRUG THERAPY
     Route: 065

REACTIONS (2)
  - Disseminated tuberculosis [Recovering/Resolving]
  - Optic neuritis [Recovering/Resolving]
